FAERS Safety Report 16230799 (Version 1)
Quarter: 2019Q2

REPORT INFORMATION
  Report Type: Spontaneous
  Country: GR (occurrence: GR)
  Receive Date: 20190423
  Receipt Date: 20190423
  Transmission Date: 20190711
  Serious: Yes (Other)
  Sender: FDA-Public Use
  Company Number: GR-ELI_LILLY_AND_COMPANY-GR201904007355

PATIENT
  Age: 66 Year
  Sex: Female
  Weight: 38 kg

DRUGS (1)
  1. FORSTEO [Suspect]
     Active Substance: TERIPARATIDE
     Indication: PRODUCT USED FOR UNKNOWN INDICATION
     Route: 058
     Dates: start: 20170826, end: 20170924

REACTIONS (9)
  - Dizziness [Unknown]
  - Hypertension [Unknown]
  - Flatulence [Unknown]
  - Weight increased [Unknown]
  - Taste disorder [Unknown]
  - Dyspnoea [Unknown]
  - Eructation [Unknown]
  - Breast swelling [Not Recovered/Not Resolved]
  - Constipation [Not Recovered/Not Resolved]

NARRATIVE: CASE EVENT DATE: 20170827
